FAERS Safety Report 8211353-0 (Version None)
Quarter: 2012Q1

REPORT INFORMATION
  Report Type: 
  Country: None (occurrence: None)
  Receive Date: 20120315
  Receipt Date: 20120307
  Transmission Date: 20120608
  Serious: Yes (Disabling, Other)
  Sender: FDA-Public Use
  Company Number: US-UCBSA-053066

PATIENT
  Age: 53 Year
  Sex: Female
  Weight: 59 kg

DRUGS (7)
  1. KEPPRA [Suspect]
     Indication: CONVULSION
     Dates: start: 20111006, end: 20111001
  2. GABAPENTIN [Suspect]
     Indication: CONVULSION
     Dosage: TOTAL DAILY DOSE: 2800 MG (1200 MG IN NOON AND 800 MG IN MORNING AND AT BEDTIME)
     Dates: start: 20091101
  3. GABAPENTIN [Suspect]
     Dosage: TOTAL DAILY DOSE: 2800 MG (1200 MG IN NOON AND 800 MG IN MORNING AND AT BEDTIME)
     Dates: start: 19960301
  4. DEPAKOTE [Suspect]
     Indication: CONVULSION
     Dates: start: 20111027, end: 20111128
  5. VALPROIC ACID [Suspect]
     Indication: CONVULSION
  6. SAVELLA [Concomitant]
     Indication: FIBROMYALGIA
  7. SOMA [Concomitant]
     Indication: OSTEOARTHRITIS

REACTIONS (6)
  - DISABILITY [None]
  - GENERAL PHYSICAL HEALTH DETERIORATION [None]
  - DRUG INEFFECTIVE [None]
  - BLINDNESS [None]
  - IMPAIRED WORK ABILITY [None]
  - MOOD ALTERED [None]
